FAERS Safety Report 25331137 (Version 1)
Quarter: 2025Q2

REPORT INFORMATION
  Report Type: Spontaneous
  Country: AR (occurrence: AR)
  Receive Date: 20250519
  Receipt Date: 20250519
  Transmission Date: 20250716
  Serious: Yes (Hospitalization)
  Sender: NOVARTIS
  Company Number: AR-002147023-NVSC2025AR078732

PATIENT
  Sex: Male

DRUGS (1)
  1. CYCLOSPORINE [Suspect]
     Active Substance: CYCLOSPORINE
     Indication: Bone marrow failure
     Route: 065
     Dates: start: 2014

REACTIONS (3)
  - Red blood cell count decreased [Recovering/Resolving]
  - Haemoglobin decreased [Unknown]
  - Product use in unapproved indication [Unknown]
